FAERS Safety Report 5287488-1 (Version None)
Quarter: 2007Q1

REPORT INFORMATION
  Report Type: 
  Country: None (occurrence: None)
  Receive Date: 20070116
  Receipt Date: 20060920
  Transmission Date: 20070707
  Serious: No
  Sender: FDA-Public Use
  Company Number: 2006SP003364

PATIENT
  Age: 71 Year
  Sex: Male
  Weight: 102.5129 kg

DRUGS (9)
  1. LUNESTA [Suspect]
     Indication: INSOMNIA
     Dosage: SEE IMAGE
     Route: 048
     Dates: start: 20050801, end: 20060101
  2. LUNESTA [Suspect]
     Indication: INSOMNIA
     Dosage: SEE IMAGE
     Route: 048
     Dates: start: 20060101
  3. PROPAFENONE HCL [Concomitant]
  4. ATENOLOL [Concomitant]
  5. LISINOPRIL [Concomitant]
  6. ATORVASTATIN CALCIUM [Concomitant]
  7. TRIAMTERENE [Concomitant]
  8. ASPIRIN [Concomitant]
  9. FLUOXETINE [Concomitant]

REACTIONS (1)
  - MIDDLE INSOMNIA [None]
